FAERS Safety Report 11928754 (Version 3)
Quarter: 2016Q2

REPORT INFORMATION
  Report Type: Spontaneous
  Country: US (occurrence: US)
  Receive Date: 20160119
  Receipt Date: 20160422
  Transmission Date: 20160815
  Serious: No
  Sender: FDA-Public Use
  Company Number: US-DRREDDYS-USA/USA/15/0054492

PATIENT
  Sex: Female
  Weight: 77 kg

DRUGS (2)
  1. ZENATANE [Suspect]
     Active Substance: ISOTRETINOIN
     Indication: ACNE
     Route: 048
     Dates: start: 20151102, end: 20151130
  2. ZENATANE [Suspect]
     Active Substance: ISOTRETINOIN
     Indication: ROSACEA

REACTIONS (1)
  - Adverse event [Unknown]
